FAERS Safety Report 10196781 (Version 1)
Quarter: 2014Q2

REPORT INFORMATION
  Report Type: Spontaneous
  Country: GB (occurrence: None)
  Receive Date: 20140522
  Receipt Date: 20140522
  Transmission Date: 20141212
  Serious: Yes (Disabling)
  Sender: FDA-Public Use
  Company Number: GB-ALKEM-000589

PATIENT
  Age: 22 Year
  Sex: Female

DRUGS (4)
  1. QUETIAPINE (QUETIAPINE) [Suspect]
     Indication: PRODUCT USED FOR UNKNOWN INDICATION
  2. HALOPERIDOL (HALOPERIDOL) (HALOPERIDOL) [Suspect]
     Indication: PRODUCT USED FOR UNKNOWN INDICATION
  3. LYRICA (LYRICA) [Suspect]
     Indication: ANXIETY
     Route: 048
     Dates: start: 2006
  4. PROCYCLIDINE (PROCYCLIDINE) [Suspect]
     Indication: PRODUCT USED FOR UNKNOWN INDICATION

REACTIONS (6)
  - Drug interaction [None]
  - Drooling [None]
  - Dystonia [None]
  - Musculoskeletal stiffness [None]
  - Movement disorder [None]
  - Muscle spasms [None]
